FAERS Safety Report 15982461 (Version 1)
Quarter: 2019Q1

REPORT INFORMATION
  Report Type: Spontaneous
  Country: US (occurrence: US)
  Receive Date: 20190219
  Receipt Date: 20190219
  Transmission Date: 20190418
  Serious: No
  Sender: FDA-Public Use
  Company Number: US-ENDO PHARMACEUTICALS INC-2018-044000

PATIENT
  Sex: Female

DRUGS (1)
  1. XIAFLEX [Suspect]
     Active Substance: COLLAGENASE CLOSTRIDIUM HISTOLYTICUM
     Indication: DUPUYTREN^S CONTRACTURE
     Dosage: UNK ONE INJECTION; RIGHT HAND MIDDLE FINGER
     Route: 026
     Dates: start: 2018

REACTIONS (4)
  - Skin laceration [Unknown]
  - Wrong technique in product usage process [Unknown]
  - Swelling [Unknown]
  - Drug ineffective [Unknown]
